FAERS Safety Report 12677726 (Version 1)
Quarter: 2016Q3

REPORT INFORMATION
  Report Type: Report from Study
  Country: AU (occurrence: AU)
  Receive Date: 20160823
  Receipt Date: 20160823
  Transmission Date: 20161109
  Serious: Yes (Hospitalization)
  Sender: FDA-Public Use
  Company Number: PHHO2010AU15774

PATIENT
  Age: 62 Year
  Sex: Female
  Weight: 68 kg

DRUGS (22)
  1. OXYCODONE [Concomitant]
     Active Substance: OXYCODONE
  2. ZOTON [Concomitant]
     Active Substance: LANSOPRAZOLE
  3. NORMAL SALINE [Concomitant]
     Active Substance: SODIUM CHLORIDE
     Indication: SUPPLEMENTATION THERAPY
  4. FRUSEMIDE [Concomitant]
     Active Substance: FUROSEMIDE
     Indication: DIURETIC THERAPY
  5. NILSTAT [Concomitant]
     Active Substance: NYSTATIN
     Indication: CANDIDA INFECTION
  6. PROGOUT [Concomitant]
     Active Substance: ALLOPURINOL
  7. SERETIDE [Concomitant]
     Active Substance: FLUTICASONE PROPIONATE\SALMETEROL XINAFOATE
  8. ATROVENT [Concomitant]
     Active Substance: IPRATROPIUM BROMIDE
  9. THYROXINE [Concomitant]
     Active Substance: LEVOTHYROXINE
  10. MAGMIN [Concomitant]
     Active Substance: MAGNESIUM ASPARTATE
  11. SLOW-K [Concomitant]
     Active Substance: POTASSIUM CHLORIDE
  12. COMPARATOR VINORELBINE [Suspect]
     Active Substance: VINORELBINE TARTRATE
     Dosage: 19 MG/M2, UNK
     Route: 065
     Dates: start: 20101019
  13. NEXIUM [Concomitant]
     Active Substance: ESOMEPRAZOLE MAGNESIUM
     Indication: GASTROOESOPHAGEAL REFLUX DISEASE
  14. KCL [Concomitant]
     Active Substance: POTASSIUM CHLORIDE
     Indication: SUPPLEMENTATION THERAPY
  15. AFINITOR [Suspect]
     Active Substance: EVEROLIMUS
     Indication: BREAST CANCER METASTATIC
     Dosage: 5 MG, QD
     Route: 048
     Dates: start: 20100622, end: 20101122
  16. COVERSYL [Concomitant]
     Active Substance: PERINDOPRIL
  17. COMPARATOR VINORELBINE [Suspect]
     Active Substance: VINORELBINE TARTRATE
     Indication: BREAST CANCER METASTATIC
     Dosage: UNK
     Route: 065
  18. METOCLOPRAMIDE. [Concomitant]
     Active Substance: METOCLOPRAMIDE
  19. WARFARIN [Concomitant]
     Active Substance: WARFARIN
  20. LIPITOR [Concomitant]
     Active Substance: ATORVASTATIN CALCIUM
  21. VENTOLIN [Concomitant]
     Active Substance: ALBUTEROL SULFATE
  22. COMPARATOR TRASTUZUMAB [Suspect]
     Active Substance: TRASTUZUMAB
     Indication: BREAST CANCER METASTATIC
     Dosage: UNK
     Route: 065
     Dates: start: 20100622

REACTIONS (15)
  - Pyrexia [Recovered/Resolved]
  - Abdominal pain upper [Recovered/Resolved]
  - Pneumonia [Unknown]
  - Vomiting [Recovered/Resolved]
  - Febrile neutropenia [Recovered/Resolved]
  - Hypokalaemia [Recovered/Resolved]
  - Decubitus ulcer [Unknown]
  - Cellulitis [Unknown]
  - Malaise [Recovered/Resolved]
  - Mobility decreased [Recovering/Resolving]
  - Urinary retention [Recovered/Resolved]
  - Abdominal tenderness [Recovered/Resolved]
  - Nausea [Recovered/Resolved]
  - Incontinence [Unknown]
  - Melaena [Unknown]

NARRATIVE: CASE EVENT DATE: 20100921
